FAERS Safety Report 7207056-1 (Version None)
Quarter: 2011Q1

REPORT INFORMATION
  Report Type: 
  Country: None (occurrence: None)
  Receive Date: 20110103
  Receipt Date: 20101228
  Transmission Date: 20110831
  Serious: Yes (Hospitalization)
  Sender: FDA-Public Use
  Company Number: B0691134A

PATIENT
  Age: 49 Year
  Sex: Female

DRUGS (2)
  1. AUGMENTIN '125' [Suspect]
     Route: 050
     Dates: start: 20100901, end: 20100901
  2. BETABLOCKER [Concomitant]
     Route: 048

REACTIONS (11)
  - ERYTHEMA [None]
  - PRURITUS GENERALISED [None]
  - MALAISE [None]
  - RESPIRATORY TRACT CONGESTION [None]
  - ANAPHYLACTIC REACTION [None]
  - OROPHARYNGEAL DISCOMFORT [None]
  - FAECAL INCONTINENCE [None]
  - BLOOD PRESSURE SYSTOLIC DECREASED [None]
  - URINARY INCONTINENCE [None]
  - DRUG HYPERSENSITIVITY [None]
  - LOSS OF CONSCIOUSNESS [None]
